FAERS Safety Report 10866421 (Version 1)
Quarter: 2015Q1

REPORT INFORMATION
  Report Type: Spontaneous
  Country: US (occurrence: None)
  Receive Date: 20150219
  Receipt Date: 20150219
  Transmission Date: 20150721
  Serious: No
  Sender: FDA-Public Use
  Company Number: None

PATIENT
  Age: 50 Year
  Sex: Female

DRUGS (1)
  1. ENBREL [Suspect]
     Active Substance: ETANERCEPT
     Indication: PSORIATIC ARTHROPATHY
     Route: 058
     Dates: start: 20141204, end: 20150213

REACTIONS (5)
  - Pyrexia [None]
  - Muscular weakness [None]
  - Vision blurred [None]
  - Arthralgia [None]
  - Tremor [None]

NARRATIVE: CASE EVENT DATE: 20150213
